FAERS Safety Report 6649431-X (Version None)
Quarter: 2010Q1

REPORT INFORMATION
  Report Type: 
  Country: None (occurrence: None)
  Receive Date: 20100322
  Receipt Date: 20100309
  Transmission Date: 20100710
  Serious: Yes (Hospitalization)
  Sender: FDA-Public Use
  Company Number: 8051293

PATIENT
  Sex: Female
  Weight: 103.2 kg

DRUGS (13)
  1. CERTOLIZUMAB PEGOL [Suspect]
     Indication: RHEUMATOID ARTHRITIS
     Dosage: (SUBCUTANEOUS)
     Route: 058
     Dates: start: 20090707, end: 20090827
  2. METHOTREXATE [Concomitant]
  3. FOLIC ACID [Concomitant]
  4. PRILOSEC [Concomitant]
  5. FLUTICSONE PROPIONATE [Concomitant]
  6. SPIRIVA [Concomitant]
  7. PROVENTIL [Concomitant]
  8. ZOCOR [Concomitant]
  9. SPECTRUM [Concomitant]
  10. ASPIRIN [Concomitant]
  11. NYSTATIN [Concomitant]
  12. MULTIVITAMIN [Concomitant]
  13. ROBITUSSIN [Concomitant]

REACTIONS (7)
  - ARTERIOSCLEROSIS CORONARY ARTERY [None]
  - CHRONIC OBSTRUCTIVE PULMONARY DISEASE [None]
  - DEEP VEIN THROMBOSIS [None]
  - LUNG NEOPLASM [None]
  - PNEUMONIA [None]
  - PULMONARY OEDEMA [None]
  - UPPER RESPIRATORY TRACT INFECTION [None]
